FAERS Safety Report 4949387-1 (Version None)
Quarter: 2006Q1

REPORT INFORMATION
  Report Type: 
  Country: None (occurrence: None)
  Receive Date: 20060321
  Receipt Date: 20060306
  Transmission Date: 20060701
  Serious: Yes (Other)
  Sender: FDA-Public Use
  Company Number: 2006AP01067

PATIENT
  Age: 64 Year
  Sex: Female

DRUGS (5)
  1. SEROQUEL [Suspect]
     Route: 048
     Dates: start: 20050101, end: 20060206
  2. SEROQUEL [Suspect]
     Route: 048
     Dates: start: 20060207
  3. RISPERDAL [Suspect]
     Route: 048
     Dates: start: 20050101, end: 20060206
  4. RISPERDAL [Suspect]
     Route: 048
     Dates: start: 20060207
  5. CONTMIN [Suspect]
     Route: 048
     Dates: start: 20050101

REACTIONS (5)
  - ASPARTATE AMINOTRANSFERASE INCREASED [None]
  - BLOOD CREATINE PHOSPHOKINASE INCREASED [None]
  - BLOOD LACTATE DEHYDROGENASE INCREASED [None]
  - MUSCULOSKELETAL STIFFNESS [None]
  - NEUROLEPTIC MALIGNANT SYNDROME [None]
